FAERS Safety Report 15882261 (Version 2)
Quarter: 2019Q1

REPORT INFORMATION
  Report Type: Spontaneous
  Country: HU (occurrence: HU)
  Receive Date: 20190128
  Receipt Date: 20190204
  Transmission Date: 20190417
  Serious: Yes (Life-Threatening, Hospitalization)
  Sender: FDA-Public Use
  Company Number: HU-ROCHE-2247691

PATIENT
  Age: 6 Year

DRUGS (5)
  1. MYCOPHENOLATE MOFETIL. [Suspect]
     Active Substance: MYCOPHENOLATE MOFETIL
     Indication: IMMUNOSUPPRESSANT DRUG THERAPY
     Dosage: UNK
     Route: 065
     Dates: start: 2018
  2. MYCOPHENOLATE MOFETIL. [Suspect]
     Active Substance: MYCOPHENOLATE MOFETIL
     Indication: LIVER TRANSPLANT
  3. TACROLIMUS. [Suspect]
     Active Substance: TACROLIMUS
     Indication: LIVER TRANSPLANT
  4. TACROLIMUS. [Suspect]
     Active Substance: TACROLIMUS
     Indication: IMMUNOSUPPRESSANT DRUG THERAPY
     Route: 065
     Dates: start: 2018
  5. PREDNISOLONE. [Concomitant]
     Active Substance: PREDNISOLONE
     Indication: LIVER TRANSPLANT
     Route: 065

REACTIONS (9)
  - Posterior reversible encephalopathy syndrome [Recovered/Resolved]
  - Oxygen saturation decreased [Recovered/Resolved]
  - Hypertension [Recovered/Resolved]
  - Staphylococcal infection [Unknown]
  - Vomiting [Recovered/Resolved]
  - Seizure [Recovered/Resolved]
  - Headache [Recovered/Resolved]
  - Tachycardia [Unknown]
  - Diarrhoea [Unknown]

NARRATIVE: CASE EVENT DATE: 2018
